FAERS Safety Report 7275886-6 (Version None)
Quarter: 2011Q1

REPORT INFORMATION
  Report Type: 
  Country: None (occurrence: None)
  Receive Date: 20110204
  Receipt Date: 20110128
  Transmission Date: 20110831
  Serious: Yes (Hospitalization)
  Sender: FDA-Public Use
  Company Number: A0779259A

PATIENT
  Age: 48 Year
  Sex: Male
  Weight: 100 kg

DRUGS (7)
  1. AVANDAMET [Suspect]
     Indication: DIABETES MELLITUS
     Route: 048
     Dates: start: 20030101, end: 20070101
  2. METFORMIN HCL [Concomitant]
  3. ZOCOR [Concomitant]
  4. LIPITOR [Concomitant]
  5. ACTOS [Concomitant]
  6. TOPROL-XL [Concomitant]
  7. CRESTOR [Concomitant]

REACTIONS (1)
  - MYOCARDIAL INFARCTION [None]
